FAERS Safety Report 4527795-0 (Version None)
Quarter: 2004Q4

REPORT INFORMATION
  Report Type: 
  Country: None (occurrence: None)
  Receive Date: 20041215
  Receipt Date: 20041026
  Transmission Date: 20050328
  Serious: Yes (Life-Threatening)
  Sender: FDA-Public Use
  Company Number: JP-GLAXOSMITHKLINE-B0349722A

PATIENT
  Age: 67 Year
  Sex: Male
  Weight: 59 kg

DRUGS (2)
  1. PAXIL [Suspect]
     Indication: DEPRESSION
     Dosage: 20MG PER DAY
     Route: 048
     Dates: start: 20041007, end: 20041010
  2. LENDORMIN [Concomitant]
     Indication: INSOMNIA
     Dosage: .5MG PER DAY
     Route: 048
     Dates: start: 20041007

REACTIONS (11)
  - CLUMSINESS [None]
  - DELIRIUM [None]
  - DELUSION [None]
  - DEREALISATION [None]
  - DISORIENTATION [None]
  - EXCITABILITY [None]
  - HALLUCINATION, VISUAL [None]
  - MEMORY IMPAIRMENT [None]
  - NEUROLEPTIC MALIGNANT SYNDROME [None]
  - SEROTONIN SYNDROME [None]
  - SUICIDE ATTEMPT [None]
